FAERS Safety Report 7712382-3 (Version None)
Quarter: 2011Q3

REPORT INFORMATION
  Report Type: 
  Country: None (occurrence: None)
  Receive Date: 20110826
  Receipt Date: 20110818
  Transmission Date: 20111222
  Serious: Yes (Death)
  Sender: FDA-Public Use
  Company Number: FR-ROCHE-798013

PATIENT
  Sex: Male

DRUGS (2)
  1. ISOTRETINOIN [Suspect]
     Route: 048
     Dates: start: 20010214, end: 20020810
  2. ISOTRETINOIN [Suspect]
     Dosage: DAILY
     Route: 048
     Dates: start: 19990902, end: 20010214

REACTIONS (7)
  - DEPRESSION [None]
  - ASTHENIA [None]
  - BACK PAIN [None]
  - INGROWING NAIL [None]
  - CHEILITIS [None]
  - COMPLETED SUICIDE [None]
  - EYE BURNS [None]
